FAERS Safety Report 9821969 (Version 1)
Quarter: 2014Q1

REPORT INFORMATION
  Report Type: Spontaneous
  Country: US (occurrence: US)
  Receive Date: 20140116
  Receipt Date: 20140116
  Transmission Date: 20141002
  Serious: Yes (Other)
  Sender: FDA-Public Use
  Company Number: US-SA-2014SA006014

PATIENT
  Sex: Male

DRUGS (7)
  1. PLAVIX [Suspect]
     Route: 065
     Dates: start: 2006
  2. ZETIA [Concomitant]
  3. AMLODIPINE [Concomitant]
  4. LIPITOR [Concomitant]
  5. METOPROLOL [Concomitant]
  6. ASPIRIN [Concomitant]
  7. SIMVASTATIN [Concomitant]

REACTIONS (2)
  - Lung neoplasm malignant [Not Recovered/Not Resolved]
  - Myocardial infarction [Not Recovered/Not Resolved]
